FAERS Safety Report 4554197-3 (Version None)
Quarter: 2005Q1

REPORT INFORMATION
  Report Type: 
  Country: None (occurrence: None)
  Receive Date: 20050113
  Receipt Date: 20050113
  Transmission Date: 20050727
  Serious: Yes (Hospitalization)
  Sender: FDA-Public Use
  Company Number: None

PATIENT
  Age: 72 Year
  Sex: Male
  Weight: 96.1626 kg

DRUGS (2)
  1. VELCADE [Suspect]
     Indication: LIVER DISORDER
     Dosage: 2.6MG   D1,4,8   INTRAVENOUS
     Route: 042
     Dates: start: 20041217, end: 20041223
  2. THALIDOMIDE   50MG [Suspect]
     Indication: LIVER DISORDER
     Dosage: 50MG  QD X 7 DAYS   ORAL
     Route: 048
     Dates: start: 20041217, end: 20041223

REACTIONS (5)
  - ANGINA PECTORIS [None]
  - ASCITES [None]
  - BLOOD POTASSIUM INCREASED [None]
  - DYSPNOEA [None]
  - RENAL FAILURE [None]
